FAERS Safety Report 8440705-9 (Version None)
Quarter: 2012Q2

REPORT INFORMATION
  Report Type: 
  Country: None (occurrence: None)
  Receive Date: 20120615
  Receipt Date: 20120611
  Transmission Date: 20120825
  Serious: Yes (Hospitalization, Other)
  Sender: FDA-Public Use
  Company Number: US-JNJFOC-20120300742

PATIENT
  Sex: Female

DRUGS (14)
  1. TRAMADOL HCL [Concomitant]
  2. BUTALBITAL ACETAMINOPHEN AND CAFFEINE [Concomitant]
  3. LISINOPRIL [Concomitant]
  4. TRIAMCINOLONE [Concomitant]
     Dosage: 0.1%,
     Route: 065
     Dates: end: 20000301
  5. STELARA [Suspect]
     Dosage: OF 3 MONTHS  ONCE EVERY 2-3 MONTHS
     Route: 058
     Dates: start: 20100302
  6. STELARA [Suspect]
     Route: 058
     Dates: start: 20111201
  7. STELARA [Suspect]
     Indication: PSORIASIS
     Route: 058
     Dates: end: 20120229
  8. STELARA [Suspect]
     Dosage: OF 2 MONTHS  ONCE EVERY 2-3 MONTHS
     Route: 058
     Dates: start: 20110101
  9. STELARA [Suspect]
     Route: 058
     Dates: start: 20110401
  10. SIMVASTATIN [Concomitant]
  11. STELARA [Suspect]
     Route: 058
     Dates: end: 20111019
  12. STELARA [Suspect]
     Dosage: OF 2 MONTHS  ONCE EVERY 2-3 MONTHS
     Route: 058
     Dates: start: 20100401
  13. STELARA [Suspect]
     Route: 058
     Dates: start: 20110701
  14. ASPIRIN [Concomitant]

REACTIONS (2)
  - EXTRADURAL ABSCESS [None]
  - STAPHYLOCOCCAL INFECTION [None]
